FAERS Safety Report 16903151 (Version 2)
Quarter: 2019Q4

REPORT INFORMATION
  Report Type: Spontaneous
  Country: US (occurrence: US)
  Receive Date: 20191010
  Receipt Date: 20191010
  Transmission Date: 20200122
  Serious: Yes (Other)
  Sender: FDA-Public Use
  Company Number: US-PFIZER INC-2019429448

PATIENT
  Age: 25 Year
  Sex: Male

DRUGS (2)
  1. CEFTRIAXONE SODIUM. [Suspect]
     Active Substance: CEFTRIAXONE SODIUM
     Indication: TYPHOID FEVER
     Dosage: 2 G, UNK
  2. CEFTRIAXONE SODIUM. [Suspect]
     Active Substance: CEFTRIAXONE SODIUM
     Indication: ANTIBIOTIC THERAPY

REACTIONS (2)
  - Acute respiratory distress syndrome [Recovered/Resolved]
  - Drug ineffective [Recovered/Resolved]
